FAERS Safety Report 4867284-7 (Version None)
Quarter: 2005Q4

REPORT INFORMATION
  Report Type: 
  Country: None (occurrence: None)
  Receive Date: 20051228
  Receipt Date: 20051216
  Transmission Date: 20060501
  Serious: Yes (Hospitalization)
  Sender: FDA-Public Use
  Company Number: US-JNJFOC-20051204639

PATIENT
  Sex: Female
  Weight: 72.58 kg

DRUGS (3)
  1. TOPAMAX [Suspect]
     Route: 048
  2. TOPAMAX [Suspect]
     Indication: MIGRAINE PROPHYLAXIS
     Route: 048
  3. VALPROATE SODIUM [Concomitant]

REACTIONS (5)
  - APRAXIA [None]
  - FALL [None]
  - HYPERAMMONAEMIA [None]
  - SPINAL COMPRESSION FRACTURE [None]
  - URINARY INCONTINENCE [None]
